FAERS Safety Report 9114270 (Version 1)
Quarter: 2013Q1

REPORT INFORMATION
  Report Type: Spontaneous
  Country: US (occurrence: US)
  Receive Date: 20130208
  Receipt Date: 20130208
  Transmission Date: 20140127
  Serious: Yes (Other)
  Sender: FDA-Public Use
  Company Number: CHPA2013US001988

PATIENT
  Age: 71 Year
  Sex: Female

DRUGS (2)
  1. VOLTAREN GEL [Suspect]
     Indication: FIBROMYALGIA
     Dosage: SQUIRT LITTLE ON PALM OF HAND
     Route: 061
  2. LIMBREL [Concomitant]
     Indication: FIBROMYALGIA
     Dosage: 50 MG, UNK

REACTIONS (5)
  - Arthritis [Not Recovered/Not Resolved]
  - Therapeutic response unexpected [Unknown]
  - Off label use [Unknown]
  - Wrong technique in drug usage process [Unknown]
  - Expired drug administered [Unknown]
